FAERS Safety Report 4472539-4 (Version None)
Quarter: 2004Q4

REPORT INFORMATION
  Report Type: 
  Country: None (occurrence: None)
  Receive Date: 20041007
  Receipt Date: 20040921
  Transmission Date: 20050328
  Serious: Yes (Hospitalization)
  Sender: FDA-Public Use
  Company Number: 04H-163-0274447-00

PATIENT
  Age: 32 Year
  Sex: Male
  Weight: 102 kg

DRUGS (3)
  1. MARCAINE [Suspect]
     Indication: ANAESTHESIA
     Dosage: 50 ML, O NCE, INTERSCALENE
     Dates: start: 20040830, end: 20040830
  2. MEPIVACAINE HCL [Concomitant]
  3. EPINEPHRINE [Concomitant]

REACTIONS (4)
  - ANAESTHETIC COMPLICATION [None]
  - BLOOD PRESSURE INCREASED [None]
  - CHEST PAIN [None]
  - HEADACHE [None]
